FAERS Safety Report 24712592 (Version 3)
Quarter: 2025Q3

REPORT INFORMATION
  Report Type: Spontaneous
  Country: JP (occurrence: JP)
  Receive Date: 20241209
  Receipt Date: 20250810
  Transmission Date: 20251021
  Serious: Yes (Death, Disabling, Other)
  Sender: ALEXION PHARMACEUTICALS
  Company Number: JP-ASTRAZENECA-240136802_064320_P_1

PATIENT
  Age: 81 Year
  Sex: Male
  Weight: 53 kg

DRUGS (29)
  1. ANDEXXA [Suspect]
     Active Substance: ANDEXANET ALFA
     Indication: Subdural haematoma
     Dates: start: 20241111, end: 20241111
  2. ANDEXXA [Suspect]
     Active Substance: ANDEXANET ALFA
     Indication: Subdural haematoma
  3. EDOXABAN TOSYLATE [Concomitant]
     Active Substance: EDOXABAN TOSYLATE
     Indication: Atrial fibrillation
  4. GASLON [Concomitant]
     Active Substance: IRSOGLADINE MALEATE
     Dosage: AFTER BREAKFAST
  5. GASLON [Concomitant]
     Active Substance: IRSOGLADINE MALEATE
     Dosage: AFTER BREAKFAST
  6. TADALAFIL [Concomitant]
     Active Substance: TADALAFIL
     Dosage: AFTER BREAKFAST
  7. DUTASTERIDE [Concomitant]
     Active Substance: DUTASTERIDE
     Dosage: AFTER BREAKFAST
  8. DUTASTERIDE [Concomitant]
     Active Substance: DUTASTERIDE
     Dosage: AFTER BREAKFAST
  9. TORSEMIDE [Concomitant]
     Active Substance: TORSEMIDE
     Dosage: AFTER BREAKFAST
  10. TORSEMIDE [Concomitant]
     Active Substance: TORSEMIDE
     Dosage: AFTER BREAKFAST
  11. TORSEMIDE [Concomitant]
     Active Substance: TORSEMIDE
     Dosage: 1 TABLET AFTER BREAKFAST
  12. ALLOPURINOL [Concomitant]
     Active Substance: ALLOPURINOL
     Dosage: AFTER DINNER
  13. ALLOPURINOL [Concomitant]
     Active Substance: ALLOPURINOL
     Dosage: AFTER DINNER
  14. ALLOPURINOL [Concomitant]
     Active Substance: ALLOPURINOL
     Dosage: 1 TABLET AFTER DINNER
  15. LANSOPRAZOLE [Concomitant]
     Active Substance: LANSOPRAZOLE
     Dosage: AFTER DINNER
  16. LANSOPRAZOLE [Concomitant]
     Active Substance: LANSOPRAZOLE
     Dosage: AFTER DINNER
  17. LANSOPRAZOLE [Concomitant]
     Active Substance: LANSOPRAZOLE
     Dosage: 1 TABLET AFTER DINNER
  18. TRAZODONE HYDROCHLORIDE [Concomitant]
     Active Substance: TRAZODONE HYDROCHLORIDE
     Dosage: AFTER DINNER
  19. TRAZODONE HYDROCHLORIDE [Concomitant]
     Active Substance: TRAZODONE HYDROCHLORIDE
     Dosage: AFTER DINNER
  20. TRAZODONE HYDROCHLORIDE [Concomitant]
     Active Substance: TRAZODONE HYDROCHLORIDE
     Dosage: 1 TABLET AFTER DINNER
  21. FLUVOXAMINE MALEATE [Concomitant]
     Active Substance: FLUVOXAMINE MALEATE
     Dosage: AFTER BREAKFAST AND DINNER
  22. FLUVOXAMINE MALEATE [Concomitant]
     Active Substance: FLUVOXAMINE MALEATE
     Dosage: AFTER BREAKFAST AND DINNER
  23. FLUVOXAMINE MALEATE [Concomitant]
     Active Substance: FLUVOXAMINE MALEATE
     Dosage: 1 TABLET/DOSE EACH AFTER BREAKFAST AND DINNER
  24. SILODOSIN [Concomitant]
     Active Substance: SILODOSIN
     Dosage: AFTER BREAKFAST AND DINNER
  25. SILODOSIN [Concomitant]
     Active Substance: SILODOSIN
     Dosage: AFTER BREAKFAST AND DINNER
  26. SILODOSIN [Concomitant]
     Active Substance: SILODOSIN
     Dosage: 1 TABLET/DOSE EACH AFTER BREAKFAST AND DINNER
  27. CEFAZOLIN SODIUM [Concomitant]
     Active Substance: CEFAZOLIN SODIUM
  28. SODIUM CHLORIDE [Concomitant]
     Active Substance: SODIUM CHLORIDE
  29. BUPRENORPHINE HYDROCHLORIDE [Concomitant]
     Active Substance: BUPRENORPHINE HYDROCHLORIDE
     Route: 065

REACTIONS (4)
  - Ischaemic stroke [Fatal]
  - Disseminated intravascular coagulation [Fatal]
  - Multiple organ dysfunction syndrome [Fatal]
  - Hypertension [Unknown]

NARRATIVE: CASE EVENT DATE: 20241111
